FAERS Safety Report 21370850 (Version 3)
Quarter: 2022Q4

REPORT INFORMATION
  Report Type: Report from Study
  Country: US (occurrence: US)
  Receive Date: 20220923
  Receipt Date: 20221031
  Transmission Date: 20230113
  Serious: Yes (Other)
  Sender: FDA-Public Use
  Company Number: US-BRISTOL-MYERS SQUIBB COMPANY-2022-109406

PATIENT
  Age: 80 Year
  Sex: Female

DRUGS (16)
  1. CAMZYOS [Suspect]
     Active Substance: MAVACAMTEN
     Indication: Hypertrophic cardiomyopathy
     Dosage: FREQUENCY: DAILY
     Route: 048
     Dates: start: 20220816
  2. PLAVIX [Concomitant]
     Active Substance: CLOPIDOGREL BISULFATE
     Indication: Hypertension
     Dosage: TAKE ONE TABLET BY MOUTH DAILY-PATIENT TAKING DIFFERENTLY-NOT TAKING WHILE SHE WAITS FOR COLONOSCOPY
     Route: 048
     Dates: start: 20211019, end: 20220915
  3. VERAPAMIL [Concomitant]
     Active Substance: VERAPAMIL HYDROCHLORIDE
     Indication: Hypertension
  4. DIOVAN [Concomitant]
     Active Substance: VALSARTAN
     Indication: Hypertension
     Route: 048
     Dates: start: 20220906, end: 20220915
  5. LISINOPRIL [Concomitant]
     Active Substance: LISINOPRIL
     Indication: Hypertension
     Dosage: DAILY
     Route: 065
  6. METOPROLOL SUCCINATE [Concomitant]
     Active Substance: METOPROLOL SUCCINATE
     Indication: Hypertension
     Dosage: ONE TABLET BY MOUTH TWICE DAILY
     Route: 048
     Dates: start: 20220525, end: 20220915
  7. TYLENOL [Concomitant]
     Active Substance: ACETAMINOPHEN
     Indication: Pain
     Dosage: AS NEEDED
     Route: 048
  8. ASPIRIN [Concomitant]
     Active Substance: ASPIRIN
     Indication: Thrombosis prophylaxis
     Dosage: EVEY EVENING
     Route: 048
  9. LIPITOR [Concomitant]
     Active Substance: ATORVASTATIN CALCIUM
     Indication: Product used for unknown indication
     Dosage: EVERY NIGHTLY, 1 TABLET
     Route: 048
     Dates: start: 20220719
  10. CALCIUM CITRATE + D3 [Concomitant]
     Indication: Supplementation therapy
     Dosage: TAKE 1 TABLET EVERY MORNING-400 MG CALCIUM
     Route: 048
  11. VITAMIN D3 [Concomitant]
     Active Substance: CHOLECALCIFEROL
     Indication: Vitamin D deficiency
     Dosage: TAKE 1 EVERYDAY, 5000 UNITS CAPSULE
     Route: 048
  12. VITAMIN D3 [Concomitant]
     Active Substance: CHOLECALCIFEROL
     Dosage: TAKE 1 CAPSULE BY MOUTH DAILY, 1000 IU DAILY-ORAL
     Route: 048
  13. PROLIA [Concomitant]
     Active Substance: DENOSUMAB
     Indication: Prophylaxis
     Dosage: TAKE 1 CAPSULE BY MOUTH DAILY, 1000 IU DAILY-ORAL?60 MG/ML
     Route: 058
  14. ADVAIR HFA [Concomitant]
     Active Substance: FLUTICASONE PROPIONATE\SALMETEROL XINAFOATE
     Indication: Product used for unknown indication
     Dosage: 230-21 MCG/ACTUATION INHALER FROM 11-OCT-2021, INHALE 2 PUFFS BY MOUTH 2 TIMES A DAY. RINSE AND GARG
     Route: 055
     Dates: start: 20211011
  15. MIRALAX [Concomitant]
     Active Substance: POLYETHYLENE GLYCOL 3350
     Indication: Constipation
     Dosage: 17 GRAM/DOSE POWDER TAKE 17 G BY MOUTH DAILY AS NEEDED
     Route: 048
  16. ZOLOFT [Concomitant]
     Active Substance: SERTRALINE HYDROCHLORIDE
     Indication: Constipation
     Dosage: TAKE 1 TABLET (25 MG) BY MOUTH DAILY
     Route: 048
     Dates: start: 20210427

REACTIONS (7)
  - Syncope [Unknown]
  - Hypertension [Unknown]
  - Dyspnoea [Unknown]
  - Oedema peripheral [Unknown]
  - Fatigue [Unknown]
  - Head injury [Unknown]
  - Fall [Unknown]

NARRATIVE: CASE EVENT DATE: 20220901
